FAERS Safety Report 13175789 (Version 1)
Quarter: 2017Q1

REPORT INFORMATION
  Report Type: Spontaneous
  Country: CN (occurrence: CN)
  Receive Date: 20170201
  Receipt Date: 20170201
  Transmission Date: 20170428
  Serious: Yes (Other)
  Sender: FDA-Public Use
  Company Number: CN-JNJFOC-20170123550

PATIENT
  Age: 23 Year
  Sex: Male

DRUGS (4)
  1. REMICADE [Suspect]
     Active Substance: INFLIXIMAB
     Indication: CROHN^S DISEASE
     Dosage: 100MG*1
     Route: 042
     Dates: start: 201601, end: 201601
  2. REMICADE [Suspect]
     Active Substance: INFLIXIMAB
     Indication: CROHN^S DISEASE
     Dosage: FIRST DOSE OF RE-INDUCTION: 100MG*1
     Route: 042
     Dates: start: 20170112, end: 20170112
  3. REMICADE [Suspect]
     Active Substance: INFLIXIMAB
     Indication: CROHN^S DISEASE
     Dosage: SECOND DOSE OF RE-INDUCTION: 300MG*D1
     Route: 042
     Dates: start: 20170125, end: 20170125
  4. REMICADE [Suspect]
     Active Substance: INFLIXIMAB
     Indication: CROHN^S DISEASE
     Dosage: LOWER DOSE
     Route: 042
     Dates: start: 201701

REACTIONS (5)
  - Tremor [Unknown]
  - Haematemesis [Recovered/Resolved]
  - Ileus [Unknown]
  - Infusion related reaction [Unknown]
  - Discomfort [Unknown]

NARRATIVE: CASE EVENT DATE: 201701
